FAERS Safety Report 7455922-4 (Version None)
Quarter: 2011Q2

REPORT INFORMATION
  Report Type: 
  Country: None (occurrence: None)
  Receive Date: 20110503
  Receipt Date: 20110426
  Transmission Date: 20111010
  Serious: Yes (Hospitalization)
  Sender: FDA-Public Use
  Company Number: IT-PFIZER INC-2011091495

PATIENT
  Age: 40 Year
  Sex: Female

DRUGS (8)
  1. NATECAL D [Concomitant]
     Dosage: UNK
     Dates: start: 20081221
  2. MEDROL [Concomitant]
     Dosage: 4 MG, UNK
     Route: 048
     Dates: start: 20081221
  3. PANTECTA [Concomitant]
     Dosage: 20 MG, UNK
     Dates: start: 20080822
  4. KETOROLAC TROMETHAMINE [Concomitant]
     Dosage: UNK
     Dates: start: 20100701
  5. ARTHROTEC [Concomitant]
     Dosage: 75 MG, UNK
     Route: 048
     Dates: start: 20100701
  6. CO-EFFERALGAN [Concomitant]
     Dosage: 500 MG, UNK
     Route: 048
     Dates: start: 20080822
  7. HUMIRA [Concomitant]
     Dosage: 40 MG, UNK
     Route: 058
     Dates: start: 20091118, end: 20100701
  8. LYRICA [Suspect]
     Indication: RHEUMATOID ARTHRITIS
     Dosage: 75 MG, 1X/DAY
     Route: 048
     Dates: start: 20100701, end: 20100823

REACTIONS (2)
  - NAUSEA [None]
  - LOSS OF CONSCIOUSNESS [None]
